FAERS Safety Report 8173071-7 (Version None)
Quarter: 2012Q1

REPORT INFORMATION
  Report Type: 
  Country: None (occurrence: None)
  Receive Date: 20120229
  Receipt Date: 20120222
  Transmission Date: 20120608
  Serious: Yes (Death, Hospitalization)
  Sender: FDA-Public Use
  Company Number: DE-JNJFOC-20120210598

PATIENT
  Age: 81 Year
  Sex: Male

DRUGS (10)
  1. RISPERDAL [Suspect]
     Indication: PRODUCT USED FOR UNKNOWN INDICATION
     Route: 048
     Dates: start: 20111124, end: 20111127
  2. HALDOL [Suspect]
     Route: 042
     Dates: start: 20111125
  3. PROPOFOL [Suspect]
     Indication: PRODUCT USED FOR UNKNOWN INDICATION
     Route: 042
     Dates: start: 20111125, end: 20111125
  4. LORAZEPAM [Concomitant]
     Route: 065
  5. HALDOL [Suspect]
     Indication: PRODUCT USED FOR UNKNOWN INDICATION
     Route: 042
     Dates: start: 20111124
  6. RISPERDAL [Suspect]
     Route: 048
     Dates: start: 20111208
  7. CLONIDINE [Concomitant]
     Route: 065
  8. DIAZEPAM [Concomitant]
     Route: 065
  9. ZYPREXA [Suspect]
     Indication: PRODUCT USED FOR UNKNOWN INDICATION
     Route: 048
     Dates: start: 20111125, end: 20111127
  10. MELPERON [Suspect]
     Indication: PRODUCT USED FOR UNKNOWN INDICATION
     Route: 048
     Dates: start: 20111125, end: 20111125

REACTIONS (6)
  - SOMNOLENCE [None]
  - PNEUMONIA [None]
  - RESPIRATORY FAILURE [None]
  - COMA [None]
  - DELIRIUM [None]
  - MENINGEAL DISORDER [None]
